FAERS Safety Report 4688609-1 (Version None)
Quarter: 2005Q2

REPORT INFORMATION
  Report Type: 
  Country: None (occurrence: None)
  Receive Date: 20050610
  Receipt Date: 20050610
  Transmission Date: 20051028
  Serious: Yes (Life-Threatening)
  Sender: FDA-Public Use
  Company Number: None

PATIENT
  Age: 74 Year
  Sex: Female
  Weight: 52.1637 kg

DRUGS (1)
  1. FERRLECIT [Suspect]
     Indication: ANAEMIA
     Dosage: 125 MG IV
     Route: 042
     Dates: start: 20050605, end: 20050605

REACTIONS (3)
  - CYANOSIS [None]
  - DYSPNOEA [None]
  - INFUSION RELATED REACTION [None]
